FAERS Safety Report 9715223 (Version 2)
Quarter: 2014Q1

REPORT INFORMATION
  Report Type: Report from Study
  Country: GB (occurrence: GB)
  Receive Date: 20131126
  Receipt Date: 20140101
  Transmission Date: 20141002
  Serious: Yes (Death)
  Sender: FDA-Public Use
  Company Number: GB-ROCHE-1309913

PATIENT
  Sex: Female

DRUGS (1)
  1. RANIBIZUMAB [Suspect]
     Indication: AGE-RELATED MACULAR DEGENERATION
     Dosage: LAST DOSE TAKEN ON 11/NOV/2011
     Route: 050
     Dates: start: 20110701, end: 20111111

REACTIONS (4)
  - Bronchopneumonia [Fatal]
  - Hypertension [Fatal]
  - Diabetes mellitus [Fatal]
  - Cerebrovascular accident [Fatal]
